FAERS Safety Report 8959625 (Version 2)
Quarter: 2013Q2

REPORT INFORMATION
  Report Type: Spontaneous
  Country: JP (occurrence: JP)
  Receive Date: 20121211
  Receipt Date: 20130529
  Transmission Date: 20140414
  Serious: Yes (Hospitalization)
  Sender: FDA-Public Use
  Company Number: PHHY2011JP82616

PATIENT
  Age: 45 Year
  Sex: Male

DRUGS (12)
  1. AFINITOR [Suspect]
     Indication: METASTATIC RENAL CELL CARCINOMA
     Dosage: 5 MG, DAILY
     Route: 048
     Dates: start: 20110131
  2. DIOVAN [Concomitant]
     Dosage: 160 MG
     Route: 048
  3. INTERFERON ALFA [Concomitant]
     Indication: METASTATIC RENAL CELL CARCINOMA
     Dosage: 3000000 IU
     Dates: start: 200910, end: 201101
  4. CALTAN [Concomitant]
     Dosage: 3000 MG
     Route: 048
  5. FOSRENOL [Concomitant]
     Dosage: 1500 MG
     Route: 048
  6. LONGES [Concomitant]
     Dosage: 5 MG
     Route: 048
  7. DIGOSIN [Concomitant]
     Dosage: 0.062 MG
     Route: 048
  8. PLETAAL [Concomitant]
     Dosage: 50 MG
     Route: 048
  9. CONIEL [Concomitant]
     Dosage: 6 MG
     Route: 048
  10. ALDOMET [Concomitant]
     Dosage: 500 MG
     Route: 048
  11. PROTECADIN [Concomitant]
     Dosage: 10 MG
     Route: 048
  12. LASIX [Concomitant]
     Dosage: 40 MG
     Route: 048

REACTIONS (1)
  - Brain stem haemorrhage [Unknown]
